FAERS Safety Report 21574828 (Version 2)
Quarter: 2022Q4

REPORT INFORMATION
  Report Type: Spontaneous
  Country: US (occurrence: US)
  Receive Date: 20221110
  Receipt Date: 20221219
  Transmission Date: 20230113
  Serious: Yes (Other)
  Sender: FDA-Public Use
  Company Number: US-BRISTOL-MYERS SQUIBB COMPANY-2022-133097

PATIENT
  Age: 39 Year
  Sex: Female

DRUGS (5)
  1. POMALYST [Suspect]
     Active Substance: POMALIDOMIDE
     Indication: Plasma cell myeloma
     Dosage: QD X 21
     Route: 048
     Dates: start: 20220926, end: 20221020
  2. POMALYST [Suspect]
     Active Substance: POMALIDOMIDE
     Dosage: QD X 21
     Route: 048
  3. NORTRIPTYLINE [Concomitant]
     Active Substance: NORTRIPTYLINE
     Dosage: DOSE: 50, UNIT: NOT SPECIFIED
     Route: 048
     Dates: start: 2015
  4. GABAPENTIN [Concomitant]
     Active Substance: GABAPENTIN
     Dosage: DOSE: 300, UNIT: NOT SPECIFIED
     Route: 048
     Dates: start: 2014
  5. ACYCLOVIR [Concomitant]
     Active Substance: ACYCLOVIR
     Dosage: DOSE: 400, UNIT: NOT SPECIFIED
     Route: 048
     Dates: start: 2014

REACTIONS (1)
  - Neutropenia [Recovered/Resolved]

NARRATIVE: CASE EVENT DATE: 20221021
